FAERS Safety Report 4973017-6 (Version None)
Quarter: 2006Q2

REPORT INFORMATION
  Report Type: 
  Country: None (occurrence: None)
  Receive Date: 20060410
  Receipt Date: 20060322
  Transmission Date: 20061013
  Serious: Yes (Hospitalization, Other)
  Sender: FDA-Public Use
  Company Number: US200603005806

PATIENT
  Sex: Female

DRUGS (1)
  1. HUMULIN 70/30 [Suspect]
     Dosage: 35 U, 2/D

REACTIONS (3)
  - DISCOMFORT [None]
  - INTESTINAL OPERATION [None]
  - POST PROCEDURAL COMPLICATION [None]
